FAERS Safety Report 7064386-4 (Version None)
Quarter: 2010Q4

REPORT INFORMATION
  Report Type: 
  Country: None (occurrence: None)
  Receive Date: 20101022
  Receipt Date: 20101022
  Transmission Date: 20110411
  Serious: Yes (Other)
  Sender: FDA-Public Use
  Company Number: None

PATIENT
  Age: 69 Year
  Sex: Female
  Weight: 81.6475 kg

DRUGS (1)
  1. ESTRADIOL [Suspect]
     Indication: OSTEOPOROSIS
     Dosage: 1 PATCH WEEKLY
     Dates: start: 20100913

REACTIONS (3)
  - APPLICATION SITE ERYTHEMA [None]
  - BURNS FIRST DEGREE [None]
  - PRURITUS [None]
